FAERS Safety Report 7012667-2 (Version None)
Quarter: 2010Q3

REPORT INFORMATION
  Report Type: 
  Country: None (occurrence: None)
  Receive Date: 20100924
  Receipt Date: 20100916
  Transmission Date: 20110219
  Serious: Yes (Other)
  Sender: FDA-Public Use
  Company Number: B0675936A

PATIENT
  Sex: Female
  Weight: 107 kg

DRUGS (2)
  1. ALLI [Suspect]
     Dosage: 60MG THREE TIMES PER DAY
     Dates: start: 20100915, end: 20100916
  2. MICROVAL [Concomitant]
     Indication: CONTRACEPTION

REACTIONS (1)
  - METRORRHAGIA [None]
